FAERS Safety Report 5603842-X (Version None)
Quarter: 2008Q1

REPORT INFORMATION
  Report Type: 
  Country: None (occurrence: None)
  Receive Date: 20080122
  Receipt Date: 20080107
  Transmission Date: 20080703
  Serious: No
  Sender: FDA-Public Use
  Company Number: 2008S1000491

PATIENT
  Age: 31 Year
  Sex: Female

DRUGS (1)
  1. AMNESTEEM [Suspect]
     Dosage: ORAL
     Route: 048
     Dates: start: 20061017, end: 20070101

REACTIONS (2)
  - DRUG EXPOSURE DURING PREGNANCY [None]
  - PREGNANCY [None]
